FAERS Safety Report 19594841 (Version 1)
Quarter: 2021Q3

REPORT INFORMATION
  Report Type: Spontaneous
  Country: NL (occurrence: FR)
  Receive Date: 20210722
  Receipt Date: 20210722
  Transmission Date: 20211014
  Serious: Yes (Hospitalization)
  Sender: FDA-Public Use
  Company Number: FR-FRESENIUS KABI-FK202107237

PATIENT
  Age: 36 Year
  Sex: Male
  Weight: 68.4 kg

DRUGS (1)
  1. FOSCARNET INJECTION (MANUFACTURER UNKNOWN) [Suspect]
     Active Substance: FOSCARNET
     Indication: PRODUCT USED FOR UNKNOWN INDICATION
     Dosage: 6 G 2/D
     Route: 042
     Dates: start: 20210531, end: 20210609

REACTIONS (1)
  - Renal tubular disorder [Not Recovered/Not Resolved]

NARRATIVE: CASE EVENT DATE: 20210601
